FAERS Safety Report 4470803-6 (Version None)
Quarter: 2004Q4

REPORT INFORMATION
  Report Type: 
  Country: None (occurrence: None)
  Receive Date: 20041007
  Receipt Date: 20041007
  Transmission Date: 20050328
  Serious: Yes (Life-Threatening, Hospitalization, Disabling)
  Sender: FDA-Public Use
  Company Number: None

PATIENT
  Age: 75 Year
  Sex: Male
  Weight: 7.9379 kg

DRUGS (1)
  1. VIOXX [Suspect]
     Indication: ARTHRITIS
     Dosage: 12.5 MG / DAY

REACTIONS (5)
  - CARDIO-RESPIRATORY ARREST [None]
  - HEMIPLEGIA [None]
  - MYOCARDIAL INFARCTION [None]
  - NERVE INJURY [None]
  - PROCEDURAL COMPLICATION [None]
